FAERS Safety Report 14239606 (Version 1)
Quarter: 2017Q4

REPORT INFORMATION
  Report Type: Spontaneous
  Country: US (occurrence: None)
  Receive Date: 20171130
  Receipt Date: 20171130
  Transmission Date: 20180321
  Serious: Yes (Hospitalization)
  Sender: FDA-Public Use
  Company Number: None

PATIENT
  Age: 74 Year
  Sex: Male
  Weight: 79.8 kg

DRUGS (4)
  1. TAMSULOSIN [Concomitant]
     Active Substance: TAMSULOSIN
  2. CASODEX [Suspect]
     Active Substance: BICALUTAMIDE
     Dates: end: 20170725
  3. LEUPROLIDE ACETATE. [Suspect]
     Active Substance: LEUPROLIDE ACETATE
     Dates: end: 20170425
  4. AMLODIPINE [Concomitant]
     Active Substance: AMLODIPINE BESYLATE

REACTIONS (7)
  - Fall [None]
  - Orthostatic intolerance [None]
  - Dizziness [None]
  - Escherichia urinary tract infection [None]
  - Therapy change [None]
  - Presyncope [None]
  - Head injury [None]

NARRATIVE: CASE EVENT DATE: 20170726
